FAERS Safety Report 5131193-9 (Version None)
Quarter: 2006Q4

REPORT INFORMATION
  Report Type: 
  Country: None (occurrence: None)
  Receive Date: 20061017
  Receipt Date: 20061017
  Transmission Date: 20070319
  Serious: Yes (Life-Threatening, Hospitalization)
  Sender: FDA-Public Use
  Company Number: None

PATIENT
  Age: 35 Year
  Sex: Female
  Weight: 74.8435 kg

DRUGS (2)
  1. ZEMURON [Suspect]
     Indication: ANAESTHESIA
     Dates: start: 20061011, end: 20061011
  2. ZEMURON [Suspect]
     Indication: SURGERY
     Dates: start: 20061011, end: 20061011

REACTIONS (2)
  - ANAESTHETIC COMPLICATION [None]
  - ANAPHYLACTIC SHOCK [None]
